FAERS Safety Report 15837545 (Version 5)
Quarter: 2019Q2

REPORT INFORMATION
  Report Type: Report from Study
  Country: ZA (occurrence: ZA)
  Receive Date: 20190117
  Receipt Date: 20190621
  Transmission Date: 20190711
  Serious: Yes (Hospitalization, Other)
  Sender: FDA-Public Use
  Company Number: ZA-SAKK-2019SA009260AA

PATIENT
  Age: 69 Year
  Sex: Female

DRUGS (7)
  1. OPTISULIN (INSULIN GLARGINE) [Suspect]
     Active Substance: INSULIN GLARGINE
     Dosage: UNK
  2. METFORMIN [Concomitant]
     Active Substance: METFORMIN HYDROCHLORIDE
     Dosage: 1000 MG, BID (AFTER BREAKFAST AND AFTER SUPPER)
     Dates: start: 20080101
  3. TOUJEO [Suspect]
     Active Substance: INSULIN GLARGINE
     Dosage: 6 U, HS (BEDTIME)
     Dates: start: 20181122
  4. NO STUDY DRUG GIVEN [Suspect]
     Active Substance: UNSPECIFIED INGREDIENT
  5. AMLOC [AMLODIPINE BESILATE] [Concomitant]
     Active Substance: AMLODIPINE BESYLATE
     Dosage: 5 MG, QD (BEFORE BREAKFAST)
     Dates: start: 20181126
  6. VILDAGLIPTIN [Concomitant]
     Active Substance: VILDAGLIPTIN
     Dosage: 50 MG, BID (BEFORE SUPPER AND BEFORE BREAKFAST)
     Dates: start: 20181123
  7. CARLOC [Concomitant]
     Active Substance: CARVEDILOL
     Dosage: 25 MG, QD (BEFORE BREAKFAST)
     Dates: start: 20181126

REACTIONS (7)
  - Asthenia [Not Recovered/Not Resolved]
  - Malaise [Not Recovered/Not Resolved]
  - Coma [Unknown]
  - Malaise [Not Recovered/Not Resolved]
  - Glycosylated haemoglobin increased [Unknown]
  - Blood glucose increased [Not Recovered/Not Resolved]
  - Ill-defined disorder [Unknown]

NARRATIVE: CASE EVENT DATE: 20190126
